FAERS Safety Report 7924131-4 (Version None)
Quarter: 2011Q4

REPORT INFORMATION
  Report Type: 
  Country: None (occurrence: None)
  Receive Date: 20111117
  Receipt Date: 20110214
  Transmission Date: 20120403
  Serious: No
  Sender: FDA-Public Use
  Company Number: US-AMGEN-USASP2011005926

PATIENT
  Age: 58 Year
  Sex: Female

DRUGS (2)
  1. ENBREL [Suspect]
     Indication: RHEUMATOID ARTHRITIS
     Dosage: 50 MG, QWK
     Dates: start: 20101230, end: 20110130
  2. TREXALL [Concomitant]
     Dates: start: 20100901

REACTIONS (6)
  - INJECTION SITE PRURITUS [None]
  - JOINT RANGE OF MOTION DECREASED [None]
  - INJECTION SITE ERYTHEMA [None]
  - ARTHRALGIA [None]
  - JOINT SWELLING [None]
  - INJECTION SITE SWELLING [None]
